FAERS Safety Report 5220515-6 (Version None)
Quarter: 2007Q1

REPORT INFORMATION
  Report Type: 
  Country: None (occurrence: None)
  Receive Date: 20070126
  Receipt Date: 20070118
  Transmission Date: 20070707
  Serious: Yes (Other)
  Sender: FDA-Public Use
  Company Number: US-JNJFOC-20070104522

PATIENT
  Sex: Female

DRUGS (12)
  1. INFLIXIMAB [Suspect]
     Indication: RHEUMATOID ARTHRITIS
     Route: 042
  2. PREDNISONE TAB [Concomitant]
  3. IBUPROFEN [Concomitant]
  4. ESTRADIOL [Concomitant]
  5. CALCIUM+D [Concomitant]
  6. VALTREX [Concomitant]
  7. AMBIEN [Concomitant]
  8. FLAX SEED OIL [Concomitant]
  9. VITAMIN B COMPLEX CAP [Concomitant]
  10. ASCORBIC ACID [Concomitant]
  11. ASTELIN [Concomitant]
     Route: 045
  12. NASACORT [Concomitant]
     Route: 045

REACTIONS (1)
  - SKIN CANCER [None]
